FAERS Safety Report 9276005 (Version 2)
Quarter: 2013Q2

REPORT INFORMATION
  Report Type: Report from Study
  Country: US (occurrence: US)
  Receive Date: 20130507
  Receipt Date: 20130604
  Transmission Date: 20140414
  Serious: Yes (Hospitalization)
  Sender: FDA-Public Use
  Company Number: US-ACTELION-A-NJ2013-82759

PATIENT
  Age: 49 Year
  Sex: Female

DRUGS (10)
  1. TRACLEER [Suspect]
     Indication: PULMONARY ARTERIAL HYPERTENSION
     Dosage: 62.5 MG, BID
     Route: 048
     Dates: start: 20120404
  2. PREDNISONE [Concomitant]
     Dosage: 10 MG, QD
  3. WELLBUTRIN [Concomitant]
     Dosage: 300 MG, OD
  4. NIFEDICAL [Concomitant]
     Dosage: 60 MG, OD
  5. PROTONIX [Concomitant]
     Dosage: 40 MG, OD
  6. METHADONE [Concomitant]
     Dosage: 20 MG, TID
  7. CYMBALTA [Concomitant]
     Dosage: 90 MG, OD
  8. IMURAN [Concomitant]
     Dosage: 50 MG, TID
  9. DILAUDID [Concomitant]
     Dosage: 2MG-4MG EVERY SIX HOURS AS NEEDED
  10. VALIUM [Concomitant]
     Dosage: EVERY 6 HOURS AS NEEDED

REACTIONS (4)
  - Osteoporosis [Recovered/Resolved]
  - Condition aggravated [Recovered/Resolved]
  - Knee arthroplasty [Unknown]
  - Tibia fracture [Unknown]
